FAERS Safety Report 11912352 (Version 2)
Quarter: 2016Q1

REPORT INFORMATION
  Report Type: Report from Study
  Country: CN (occurrence: CN)
  Receive Date: 20160113
  Receipt Date: 20160222
  Transmission Date: 20160526
  Serious: Yes (Hospitalization)
  Sender: FDA-Public Use
  Company Number: CN-ROCHE-1683135

PATIENT
  Sex: Male
  Weight: 53 kg

DRUGS (9)
  1. LACTULOSE. [Concomitant]
     Active Substance: LACTULOSE
     Route: 065
     Dates: start: 20151204, end: 20151204
  2. GLYCERIN. [Concomitant]
     Active Substance: GLYCERIN
     Route: 065
     Dates: start: 20151208, end: 20151208
  3. ESTAZOLAM. [Concomitant]
     Active Substance: ESTAZOLAM
     Route: 065
     Dates: start: 20151109
  4. TRASTUZUMAB [Suspect]
     Active Substance: TRASTUZUMAB
     Indication: GASTRIC CANCER
     Route: 042
     Dates: start: 20151123, end: 20151123
  5. ORNITHINE [Concomitant]
     Active Substance: ORNITHINE
     Route: 065
     Dates: start: 20151123, end: 20151214
  6. CANTHARIS [Concomitant]
     Active Substance: LYTTA VESICATORIA
     Route: 065
     Dates: start: 20151123, end: 20151208
  7. PACLITAXEL. [Suspect]
     Active Substance: PACLITAXEL
     Indication: GASTRIC CANCER
     Route: 042
     Dates: start: 20151123, end: 20151123
  8. GLUTATHIONE [Concomitant]
     Active Substance: GLUTATHIONE
     Route: 065
     Dates: start: 20151204, end: 20151214
  9. LACTULOSE. [Concomitant]
     Active Substance: LACTULOSE
     Route: 065
     Dates: start: 20151208, end: 20151208

REACTIONS (1)
  - Hepatic function abnormal [Recovered/Resolved]
